FAERS Safety Report 10909272 (Version 1)
Quarter: 2015Q1

REPORT INFORMATION
  Report Type: Spontaneous
  Country: US (occurrence: US)
  Receive Date: 20150312
  Receipt Date: 20150312
  Transmission Date: 20150721
  Serious: No
  Sender: FDA-Public Use
  Company Number: US-SA-2014SA038503

PATIENT
  Age: 77 Year
  Sex: Male
  Weight: 152 kg

DRUGS (1)
  1. NASACORT ALLERGY 24HR [Suspect]
     Active Substance: TRIAMCINOLONE ACETONIDE
     Indication: URINARY TRACT INFECTION
     Dosage: START DATE - 7 DAYS AGO?DOSE - 2 SPRAYS/ NOSTRIL
     Route: 045

REACTIONS (6)
  - Sneezing [Recovering/Resolving]
  - Cough [Recovering/Resolving]
  - Upper-airway cough syndrome [Recovering/Resolving]
  - Insomnia [Unknown]
  - Rhinorrhoea [Recovering/Resolving]
  - Productive cough [Recovering/Resolving]
